FAERS Safety Report 25495025 (Version 3)
Quarter: 2025Q3

REPORT INFORMATION
  Report Type: Spontaneous
  Country: US (occurrence: US)
  Receive Date: 20250630
  Receipt Date: 20250702
  Transmission Date: 20251021
  Serious: Yes (Life-Threatening, Hospitalization)
  Sender: PFIZER
  Company Number: US-MLMSERVICE-20250617-PI544277-00145-1

PATIENT
  Age: 17 Year
  Sex: Male
  Weight: 108.9 kg

DRUGS (2)
  1. FENTANYL CITRATE [Suspect]
     Active Substance: FENTANYL CITRATE
  2. CANNABIS SATIVA SUBSP. INDICA TOP [Suspect]
     Active Substance: CANNABIS SATIVA SUBSP. INDICA TOP

REACTIONS (9)
  - Metabolic disorder [Recovering/Resolving]
  - Cannabinoid hyperemesis syndrome [Recovering/Resolving]
  - Condition aggravated [Recovering/Resolving]
  - Drug withdrawal syndrome [Recovering/Resolving]
  - Unresponsive to stimuli [Recovered/Resolved]
  - Hypertension [Recovering/Resolving]
  - Intentional product misuse [Recovering/Resolving]
  - Sinus tachycardia [Recovering/Resolving]
  - Agitation [Recovering/Resolving]
